FAERS Safety Report 7266718 (Version 2)
Quarter: 2014Q1

REPORT INFORMATION
  Report Type: Spontaneous
  Country: US (occurrence: None)
  Receive Date: 20100119
  Receipt Date: 20140225
  Transmission Date: 20141002
  Serious: Yes (Other)
  Sender: FDA-Public Use
  Company Number: 2010S1000047

PATIENT
  Age: 76 Year
  Sex: Female

DRUGS (5)
  1. FLEET PHOSPHO-SODA ORAL SALINE LAXATIVE, GINGER-LEMON FLAVOR (ORAL SOLUTION) [Suspect]
     Indication: COLONOSCOPY
     Dosage: ; PO
     Route: 048
     Dates: start: 20060813, end: 20060814
  2. LIPITOR (ATORVASTATIN CALCIUM) [Concomitant]
  3. DIOVAN HCT (HYDROCHLOROTHIAZIDE, VALSARTAN) [Concomitant]
  4. TYLENOL (PARACETAMOL) [Concomitant]
  5. COUMADIN (WARFARIN SODIUM) [Concomitant]

REACTIONS (4)
  - Renal failure chronic [None]
  - Nephrogenic anaemia [None]
  - Hyperparathyroidism secondary [None]
  - Abdominal discomfort [None]
